FAERS Safety Report 23535623 (Version 1)
Quarter: 2024Q1

REPORT INFORMATION
  Report Type: Spontaneous
  Country: JP (occurrence: JP)
  Receive Date: 20240218
  Receipt Date: 20240218
  Transmission Date: 20240410
  Serious: Yes (Hospitalization, Other)
  Sender: FDA-Public Use
  Company Number: JP-VIIV HEALTHCARE LIMITED-JP2024JPN019958

PATIENT

DRUGS (1)
  1. TRIUMEQ [Suspect]
     Active Substance: ABACAVIR SULFATE\DOLUTEGRAVIR SODIUM\LAMIVUDINE
     Indication: HIV infection
     Dosage: UNK
     Route: 048

REACTIONS (5)
  - Cerebrovascular accident [Recovered/Resolved]
  - Cerebral haemorrhage [Unknown]
  - Wrong technique in product usage process [Unknown]
  - Product use issue [Unknown]
  - Off label use [Unknown]
